FAERS Safety Report 6647656-0 (Version None)
Quarter: 2010Q1

REPORT INFORMATION
  Report Type: 
  Country: None (occurrence: None)
  Receive Date: 20100323
  Receipt Date: 20100323
  Transmission Date: 20100710
  Serious: Yes (Hospitalization, Other)
  Sender: FDA-Public Use
  Company Number: None

PATIENT
  Age: 19 Year
  Sex: Female
  Weight: 100 kg

DRUGS (2)
  1. STELAZINE [Suspect]
     Indication: MENTAL DISORDER
     Dosage: 10 MG ONCE DAILY 047
     Dates: start: 19850101
  2. ZYPREXA [Suspect]
     Dosage: 20 MG DAILY ONCE 047
     Dates: start: 20050101

REACTIONS (3)
  - DELUSION [None]
  - HALLUCINATION, AUDITORY [None]
  - WEIGHT DECREASED [None]
